FAERS Safety Report 24075481 (Version 5)
Quarter: 2025Q3

REPORT INFORMATION
  Report Type: Spontaneous
  Country: GB (occurrence: GB)
  Receive Date: 20240710
  Receipt Date: 20250828
  Transmission Date: 20251020
  Serious: Yes (Other)
  Sender: AVEO PHARMACEUTICALS
  Company Number: GB-AVEO PHARMACEUTICALS, INC.-2024-AVEO-GB000517

PATIENT
  Sex: Female

DRUGS (1)
  1. FOTIVDA [Suspect]
     Active Substance: TIVOZANIB HYDROCHLORIDE
     Indication: Product used for unknown indication
     Dosage: 890 MICROGRAM, BID FOR 21 DAYS, THEN 7 DAYS WITHOUT
     Route: 065

REACTIONS (3)
  - Concomitant disease aggravated [Unknown]
  - Overdose [Unknown]
  - Off label use [Unknown]
